FAERS Safety Report 15037491 (Version 1)
Quarter: 2018Q2

REPORT INFORMATION
  Report Type: Spontaneous
  Country: FR (occurrence: FR)
  Receive Date: 20180620
  Receipt Date: 20180620
  Transmission Date: 20180711
  Serious: Yes (Life-Threatening, Hospitalization)
  Sender: FDA-Public Use
  Company Number: FR-TEVA-2018-FR-911538

PATIENT
  Age: 62 Year
  Sex: Female
  Weight: 114 kg

DRUGS (14)
  1. ESOMEPRAZOLE [Suspect]
     Active Substance: ESOMEPRAZOLE
     Route: 048
  2. TERCIAN [Suspect]
     Active Substance: CYAMEMAZINE
     Route: 048
  3. DUPHALAC [Suspect]
     Active Substance: LACTULOSE
     Route: 048
  4. P?RINDOPRIL TERT-BUTYLAMINE [Suspect]
     Active Substance: PERINDOPRIL ERBUMINE
     Route: 048
  5. VALDOXAN [Suspect]
     Active Substance: AGOMELATINE
     Route: 048
  6. TRANXENE [Suspect]
     Active Substance: CLORAZEPATE DIPOTASSIUM
     Route: 048
  7. CLOPIDOGREL (CHLORHYDRATE DE) [Suspect]
     Active Substance: CLOPIDOGREL HYDROCHLORIDE
     Route: 048
  8. XEROQUEL LP 300 MG, COMPRIM? ? LIB?RATION PROLONG?E [Suspect]
     Active Substance: QUETIAPINE FUMARATE
     Route: 048
  9. EFFEXOR [Suspect]
     Active Substance: VENLAFAXINE HYDROCHLORIDE
     Route: 048
  10. LYRICA [Suspect]
     Active Substance: PREGABALIN
     Route: 048
  11. IXPRIM [Suspect]
     Active Substance: ACETAMINOPHEN\TRAMADOL HYDROCHLORIDE
     Route: 048
  12. ACEBUTOLOL (CHLORHYDRATE D^) [Suspect]
     Active Substance: ACEBUTOLOL HYDROCHLORIDE
     Route: 048
  13. EZETIMIBE. [Suspect]
     Active Substance: EZETIMIBE
     Route: 048
  14. TEGRETOL [Suspect]
     Active Substance: CARBAMAZEPINE
     Route: 048

REACTIONS (5)
  - Coma [Recovered/Resolved]
  - Hyponatraemia [Recovering/Resolving]
  - Hypotension [Recovered/Resolved]
  - Toxicity to various agents [Recovered/Resolved]
  - Bradycardia [Recovered/Resolved]

NARRATIVE: CASE EVENT DATE: 20150310
